FAERS Safety Report 21407291 (Version 2)
Quarter: 2022Q4

REPORT INFORMATION
  Report Type: Report from Study
  Country: HU (occurrence: HU)
  Receive Date: 20221004
  Receipt Date: 20221012
  Transmission Date: 20230113
  Serious: Yes (Hospitalization, Other)
  Sender: FDA-Public Use
  Company Number: HU-TAKEDA-2019TUS070514

PATIENT
  Age: 43 Year
  Sex: Male

DRUGS (5)
  1. VEDOLIZUMAB [Suspect]
     Active Substance: VEDOLIZUMAB
     Indication: Inflammatory bowel disease
     Dosage: 300 MILLIGRAM
     Route: 058
     Dates: start: 20160928, end: 20171028
  2. VEDOLIZUMAB [Suspect]
     Active Substance: VEDOLIZUMAB
     Indication: Crohn^s disease
  3. PENTASA [Suspect]
     Active Substance: MESALAMINE
     Indication: Crohn^s disease
     Dosage: UNK
     Route: 061
     Dates: start: 20170928, end: 20171028
  4. MEDROL [Suspect]
     Active Substance: METHYLPREDNISOLONE
     Indication: Crohn^s disease
     Dosage: 10 MILLIGRAM, QD
     Route: 048
     Dates: start: 20160928, end: 20170928
  5. STELARA [Suspect]
     Active Substance: USTEKINUMAB
     Indication: Crohn^s disease
     Dosage: 90 MILLIGRAM
     Route: 042
     Dates: start: 20181028

REACTIONS (6)
  - Embolism [Recovered/Resolved]
  - Venous thrombosis [Recovered/Resolved]
  - Feeding disorder [Recovered/Resolved]
  - Anaemia vitamin B12 deficiency [Recovering/Resolving]
  - Anal abscess [Recovering/Resolving]
  - Type 2 diabetes mellitus [Recovering/Resolving]

NARRATIVE: CASE EVENT DATE: 20171213
